FAERS Safety Report 4705492-6 (Version None)
Quarter: 2005Q2

REPORT INFORMATION
  Report Type: 
  Country: None (occurrence: None)
  Receive Date: 20050629
  Receipt Date: 20041112
  Transmission Date: 20051028
  Serious: Yes (Life-Threatening, Hospitalization, Other)
  Sender: FDA-Public Use
  Company Number: 200112139US

PATIENT
  Age: 62 Year
  Sex: Female

DRUGS (5)
  1. CISPLATIN [Suspect]
     Dosage: 144 MG; IV
     Route: 042
     Dates: start: 20010302, end: 20010302
  2. FLUOROURACIL [Suspect]
     Dosage: 1440 MG QD; IV
     Route: 042
     Dates: start: 20010303, end: 20010307
  3. ATIVAN [Concomitant]
  4. ANZEMET [Concomitant]
  5. COMPAZINE [Concomitant]

REACTIONS (8)
  - HERPES SIMPLEX [None]
  - HYPOKALAEMIA [None]
  - HYPONATRAEMIA [None]
  - NAUSEA [None]
  - PNEUMONIA HAEMOPHILUS [None]
  - RESPIRATORY FAILURE [None]
  - STOMATITIS [None]
  - VOMITING [None]
